FAERS Safety Report 9867579 (Version 1)
Quarter: 2014Q1

REPORT INFORMATION
  Report Type: Spontaneous
  Country: BR (occurrence: BR)
  Receive Date: 20140204
  Receipt Date: 20140204
  Transmission Date: 20141002
  Serious: Yes (Hospitalization)
  Sender: FDA-Public Use
  Company Number: BR-ASTRAZENECA-2014SE06172

PATIENT
  Age: 23 Year
  Sex: Male
  Weight: 64 kg

DRUGS (2)
  1. NEXIUM [Suspect]
     Indication: GASTRITIS
     Dosage: DAILY
     Route: 048
     Dates: start: 201311
  2. BRILINTA [Suspect]
     Indication: VENOUS THROMBOSIS LIMB
     Dosage: TWO TIMES A DAY
     Route: 048
     Dates: start: 20140127

REACTIONS (2)
  - Venous thrombosis limb [Recovered/Resolved]
  - Off label use [Not Recovered/Not Resolved]
